FAERS Safety Report 13962621 (Version 1)
Quarter: 2017Q3

REPORT INFORMATION
  Report Type: Spontaneous
  Country: US (occurrence: None)
  Receive Date: 20170912
  Receipt Date: 20170912
  Transmission Date: 20171128
  Serious: No
  Sender: FDA-Public Use
  Company Number: None

PATIENT
  Age: 29 Year
  Sex: Female
  Weight: 80.74 kg

DRUGS (1)
  1. PARAGARD T 380A [Suspect]
     Active Substance: COPPER
     Indication: CONTRACEPTION
     Route: 015
     Dates: start: 20121008, end: 20170809

REACTIONS (4)
  - Device breakage [None]
  - Complication of device removal [None]
  - Device dislocation [None]
  - Device extrusion [None]

NARRATIVE: CASE EVENT DATE: 20170809
